FAERS Safety Report 9611811 (Version 1)
Quarter: 2013Q4

REPORT INFORMATION
  Report Type: Spontaneous
  Country: US (occurrence: None)
  Receive Date: 20131008
  Receipt Date: 20131008
  Transmission Date: 20140711
  Serious: No
  Sender: FDA-Public Use
  Company Number: 2012034303

PATIENT
  Age: 70 Year
  Sex: Male
  Weight: 77.57 kg

DRUGS (1)
  1. PRIVIGEN [Suspect]
     Indication: THROMBOCYTOPENIA

REACTIONS (3)
  - Myalgia [None]
  - Pain [None]
  - Nausea [None]
